FAERS Safety Report 24555133 (Version 2)
Quarter: 2025Q1

REPORT INFORMATION
  Report Type: Spontaneous
  Country: JP (occurrence: JP)
  Receive Date: 20241028
  Receipt Date: 20250115
  Transmission Date: 20250409
  Serious: Yes (Death, Hospitalization, Other)
  Sender: Steriscience PTE
  Company Number: JP-STERISCIENCE B.V.-2024-ST-001733

PATIENT
  Age: 56 Year
  Sex: Male

DRUGS (6)
  1. VANCOMYCIN [Suspect]
     Active Substance: VANCOMYCIN
     Indication: Pneumonia
     Route: 042
     Dates: start: 2023, end: 202304
  2. AMPICILLIN AND SULBACTAM [Suspect]
     Active Substance: AMPICILLIN SODIUM\SULBACTAM SODIUM
     Indication: Pneumonia
     Route: 065
     Dates: start: 2023, end: 202304
  3. VORICONAZOLE [Suspect]
     Active Substance: VORICONAZOLE
     Indication: Pneumonia
     Route: 065
     Dates: start: 2023, end: 202304
  4. PREDNISOLONE [Concomitant]
     Active Substance: PREDNISOLONE
     Indication: Protein-losing gastroenteropathy
     Route: 048
  5. ALBUMINAR [Concomitant]
     Active Substance: ALBUMIN HUMAN
     Indication: Protein-losing gastroenteropathy
     Route: 042
  6. SPIRONOLACTONE [Concomitant]
     Active Substance: SPIRONOLACTONE
     Indication: Protein-losing gastroenteropathy
     Route: 048

REACTIONS (7)
  - Hepatic enzyme increased [Fatal]
  - Alanine aminotransferase increased [Fatal]
  - Mesenteric panniculitis [Fatal]
  - Pleural effusion [Fatal]
  - Pneumothorax [Fatal]
  - Respiratory failure [Fatal]
  - Drug ineffective [Fatal]

NARRATIVE: CASE EVENT DATE: 20230101
